FAERS Safety Report 13036429 (Version 1)
Quarter: 2016Q4

REPORT INFORMATION
  Report Type: Spontaneous
  Country: US (occurrence: US)
  Receive Date: 20161216
  Receipt Date: 20161216
  Transmission Date: 20170207
  Serious: No
  Sender: FDA-Public Use
  Company Number: US-009507513-1611USA014200

PATIENT
  Age: 53 Year
  Sex: Male

DRUGS (1)
  1. INTRON A [Suspect]
     Active Substance: INTERFERON ALFA-2B
     Indication: SQUAMOUS CELL CARCINOMA
     Dosage: 1 MILLION UNITS/ML, 4 TIMES A DAY
     Route: 047

REACTIONS (1)
  - Product use issue [Unknown]
